FAERS Safety Report 7331348-9 (Version None)
Quarter: 2011Q1

REPORT INFORMATION
  Report Type: 
  Country: None (occurrence: None)
  Receive Date: 20110304
  Receipt Date: 20100817
  Transmission Date: 20110831
  Serious: Yes (Hospitalization)
  Sender: FDA-Public Use
  Company Number: US-BAYER-201018324NA

PATIENT
  Sex: Female
  Weight: 104 kg

DRUGS (16)
  1. ANTIBIOTICS [Concomitant]
     Indication: PNEUMONIA
  2. ALLEGRA [Concomitant]
     Dosage: 180 MG, UNK
  3. NYQUIL [Concomitant]
  4. UNCODEABLE ^UNCLASSIFIABLE^ [Concomitant]
     Indication: PNEUMONIA
  5. IRON [Concomitant]
     Indication: ANAEMIA
     Dosage: 60 MG, QD
     Route: 048
  6. FLAXSEED OIL [Concomitant]
     Dosage: UNK
     Dates: start: 20060101
  7. YASMIN [Suspect]
     Indication: PRODUCT USED FOR UNKNOWN INDICATION
     Dosage: UNK UNK, UNK
     Route: 048
     Dates: start: 20060301, end: 20070201
  8. LASIX [Concomitant]
     Indication: DIURETIC THERAPY
     Dosage: UNK
     Dates: start: 20010101, end: 20090101
  9. FISH OIL [Concomitant]
     Dosage: UNK
     Dates: start: 20060101
  10. FOLATE SODIUM [Concomitant]
  11. LISINOPRIL [Concomitant]
     Indication: HYPERTENSION
     Dosage: 20 MG, UNK
     Route: 048
     Dates: start: 20010101
  12. METOPROLOL [Concomitant]
     Dosage: UNK
     Dates: start: 20070201, end: 20070501
  13. DAYQUIL [DEXTROMET HBR,GUAIF,PARACET,PSEUDOEPH HCL] [Concomitant]
  14. ZITHROMAX [Concomitant]
     Indication: PNEUMONIA
  15. YAZ [Suspect]
     Indication: PRODUCT USED FOR UNKNOWN INDICATION
     Route: 048
     Dates: start: 20060301
  16. HYDROCHLOROTHIAZIDE [Concomitant]
     Indication: DIURETIC THERAPY
     Dosage: UNK
     Dates: start: 20010101, end: 20090101

REACTIONS (9)
  - PAIN IN EXTREMITY [None]
  - ERYTHEMA [None]
  - DEEP VEIN THROMBOSIS [None]
  - TENDERNESS [None]
  - PARAESTHESIA [None]
  - OEDEMA PERIPHERAL [None]
  - TACHYPNOEA [None]
  - PULMONARY EMBOLISM [None]
  - TACHYCARDIA [None]
